FAERS Safety Report 19279865 (Version 1)
Quarter: 2021Q2

REPORT INFORMATION
  Report Type: Spontaneous
  Country: US (occurrence: US)
  Receive Date: 20210520
  Receipt Date: 20210520
  Transmission Date: 20210717
  Serious: Yes (Other)
  Sender: FDA-Public Use
  Company Number: US-SA-2021SA163930

PATIENT
  Age: 61 Year
  Sex: Male

DRUGS (1)
  1. ZANTAC [Suspect]
     Active Substance: RANITIDINE HYDROCHLORIDE
     Indication: DYSPEPSIA
     Dosage: 150 MG, QD
     Dates: start: 199001, end: 201201

REACTIONS (3)
  - Bladder cancer stage II [Unknown]
  - Extranodal marginal zone B-cell lymphoma (MALT type) [Unknown]
  - Prostate cancer stage 0 [Unknown]

NARRATIVE: CASE EVENT DATE: 19961001
